FAERS Safety Report 19743513 (Version 13)
Quarter: 2023Q1

REPORT INFORMATION
  Report Type: Other
  Country: GB (occurrence: GB)
  Receive Date: 20210825
  Receipt Date: 20230322
  Transmission Date: 20230418
  Serious: Yes (Death, Life-Threatening, Hospitalization, Other)
  Sender: FDA-Public Use
  Company Number: None

PATIENT
  Age: 71 Year
  Sex: Female
  Weight: 51.2 kg

DRUGS (130)
  1. AMLODIPINE [Suspect]
     Active Substance: AMLODIPINE BESYLATE
     Indication: Hypertension
     Dosage: 1 MILLIGRAM, QD, ONCE A DAY
     Route: 065
  2. AMLODIPINE [Suspect]
     Active Substance: AMLODIPINE BESYLATE
     Dosage: 1, QD
     Route: 065
  3. AMLODIPINE [Suspect]
     Active Substance: AMLODIPINE BESYLATE
     Dosage: UNK, 1 PER DAY
     Route: 065
  4. AMLODIPINE [Suspect]
     Active Substance: AMLODIPINE BESYLATE
     Dosage: UNK, 1 PER DAY
     Route: 065
  5. AMLODIPINE [Suspect]
     Active Substance: AMLODIPINE BESYLATE
     Dosage: UNK, QD
     Route: 065
  6. AMLODIPINE [Suspect]
     Active Substance: AMLODIPINE BESYLATE
     Dosage: 1, QD
     Route: 065
  7. AMLODIPINE [Suspect]
     Active Substance: AMLODIPINE BESYLATE
     Dosage: UNK
     Route: 065
  8. AMLODIPINE [Suspect]
     Active Substance: AMLODIPINE BESYLATE
     Dosage: 1, QD
     Route: 065
  9. AMLODIPINE [Suspect]
     Active Substance: AMLODIPINE BESYLATE
     Dosage: 1, QD
     Route: 065
  10. AMLODIPINE [Suspect]
     Active Substance: AMLODIPINE BESYLATE
     Dosage: UNK, 1 PER DAY
     Route: 065
  11. AMLODIPINE [Suspect]
     Active Substance: AMLODIPINE BESYLATE
     Dosage: UNK
     Route: 065
  12. CARBOPLATIN [Suspect]
     Active Substance: CARBOPLATIN
     Indication: Non-small cell lung cancer
     Dosage: 450 MILLIGRAM, QD
     Route: 065
     Dates: start: 20200729
  13. CARBOPLATIN [Suspect]
     Active Substance: CARBOPLATIN
     Dosage: 450 MILLIGRAM, PER DAY (STARTED ON 29 JUL 2020)
     Route: 065
     Dates: start: 20200729
  14. CARBOPLATIN [Suspect]
     Active Substance: CARBOPLATIN
     Dosage: 450 MILLIGRAM QD (ENDOTRACHEOPULMONARY INSTILLATION, POWDER FOR SOLUTION 450 MG, ONCE PER DAY)
     Route: 065
  15. CIPROFLOXACIN [Suspect]
     Active Substance: CIPROFLOXACIN
     Indication: Prophylaxis
     Dosage: 1, BID (STARTED ON 27 AUG 2020)
     Route: 065
     Dates: start: 20200827
  16. CIPROFLOXACIN [Suspect]
     Active Substance: CIPROFLOXACIN
     Dosage: UNK (STARTED ON 27 AUG 2020)
     Route: 065
     Dates: start: 20200827
  17. CIPROFLOXACIN [Suspect]
     Active Substance: CIPROFLOXACIN
     Dosage: 2 DOSAGE FORM/DAY (STARTED ON 27 AUG 2020)
     Route: 065
     Dates: start: 20200827
  18. CIPROFLOXACIN [Suspect]
     Active Substance: CIPROFLOXACIN
     Dosage: UNK
     Route: 065
  19. DEXAMETHASONE [Suspect]
     Active Substance: DEXAMETHASONE
     Indication: Dysphagia
     Dosage: 1 MILLIGRAM, PER DAY (STARTED ON 26 AUG 2020)
     Route: 065
     Dates: start: 20200826
  20. DEXAMETHASONE [Suspect]
     Active Substance: DEXAMETHASONE
     Indication: Prophylaxis
     Dosage: UNK, ONCE PER DAY (STARTED ON 26 AUG 2020)
     Route: 065
  21. DEXAMETHASONE [Suspect]
     Active Substance: DEXAMETHASONE
     Dosage: UNK (STARTED ON 26 AUG 2020)
     Route: 065
     Dates: start: 20200826
  22. DEXAMETHASONE [Suspect]
     Active Substance: DEXAMETHASONE
     Dosage: 1, UNK, EVERY 12 HRS
     Route: 065
  23. DEXAMETHASONE [Suspect]
     Active Substance: DEXAMETHASONE
     Dosage: 1,UNK, BID
     Route: 065
  24. DEXAMETHASONE [Suspect]
     Active Substance: DEXAMETHASONE
     Dosage: UNK
     Route: 065
  25. DEXAMETHASONE [Suspect]
     Active Substance: DEXAMETHASONE
     Dosage: 1, UNK, EVERY 12 HRS
     Route: 065
  26. DEXAMETHASONE [Suspect]
     Active Substance: DEXAMETHASONE
     Dosage: 1,UNK, BID
     Route: 065
  27. DEXAMETHASONE [Suspect]
     Active Substance: DEXAMETHASONE
     Dosage: 1, UNK, EVERY 12 HRS
     Route: 065
  28. DEXAMETHASONE [Suspect]
     Active Substance: DEXAMETHASONE
     Dosage: 1,UNK, BID
     Route: 065
  29. ETOPOSIDE [Suspect]
     Active Substance: ETOPOSIDE
     Indication: Non-small cell lung cancer
     Dosage: 148 MILLIGRAM PER DAY (STARTED ON 29-JUL-2020)
     Route: 042
     Dates: start: 20200729
  30. ETOPOSIDE [Suspect]
     Active Substance: ETOPOSIDE
     Indication: Small cell lung cancer extensive stage
     Dosage: 600 MILLIGRAM PER DAY
     Route: 048
     Dates: start: 20200730
  31. ETOPOSIDE [Suspect]
     Active Substance: ETOPOSIDE
     Dosage: 600 MILLIGRAM
     Route: 065
     Dates: start: 20200730
  32. AMOXICILLIN [Suspect]
     Active Substance: AMOXICILLIN
     Indication: Product used for unknown indication
     Dosage: 1 UNK, EVERY 6 HRS (STARTED ON 10 AUG 2020 TO 16 AUG 2020)
     Route: 065
     Dates: start: 20200810, end: 20200816
  33. AMOXICILLIN [Suspect]
     Active Substance: AMOXICILLIN
     Dosage: 1 DOSAGE FORM, PER DAY (STARTED FROM 10 AUG 2020 TILL 16 AUG 2020)
     Route: 065
     Dates: start: 20200810, end: 20200816
  34. AMOXICILLIN [Suspect]
     Active Substance: AMOXICILLIN
     Dosage: 1 UNK, QID (STARTED ON 10 AUG 2020 TO 16-AUG-2020)
     Route: 065
     Dates: start: 20200810, end: 20200816
  35. AMOXICILLIN [Suspect]
     Active Substance: AMOXICILLIN
     Dosage: UNK, (STARTED ON 10 AUG 2020 TO 16-AUG-2020)
     Route: 065
     Dates: start: 20200810, end: 20200816
  36. AMOXICILLIN [Suspect]
     Active Substance: AMOXICILLIN
     Dosage: UNK, 4 TIMES PER DAY
     Route: 065
  37. MORPHINE SULFATE [Suspect]
     Active Substance: MORPHINE SULFATE
     Indication: Prophylaxis
     Dosage: UNK
     Route: 065
     Dates: start: 20200727
  38. MORPHINE SULFATE [Suspect]
     Active Substance: MORPHINE SULFATE
     Indication: Pain
     Dosage: UNK (ORAMORPH) PER DAY
     Route: 065
     Dates: start: 20200727
  39. MORPHINE SULFATE [Suspect]
     Active Substance: MORPHINE SULFATE
     Dosage: 1 MILLIGRAM, QD
     Route: 065
     Dates: start: 20200727
  40. MORPHINE SULFATE [Suspect]
     Active Substance: MORPHINE SULFATE
     Dosage: UNK
     Route: 065
     Dates: start: 20200727
  41. MORPHINE SULFATE [Suspect]
     Active Substance: MORPHINE SULFATE
     Dosage: UNK,1 PER DAY
     Route: 065
     Dates: start: 20200727
  42. MORPHINE SULFATE [Suspect]
     Active Substance: MORPHINE SULFATE
     Dosage: UNK, BID (1, BID)
     Route: 065
     Dates: start: 20200731
  43. MORPHINE SULFATE [Suspect]
     Active Substance: MORPHINE SULFATE
     Dosage: UNK, QD (1, PER DAY)
     Route: 065
     Dates: start: 20200731
  44. MORPHINE SULFATE [Suspect]
     Active Substance: MORPHINE SULFATE
     Dosage: UNK
     Route: 065
     Dates: start: 20200825
  45. MORPHINE SULFATE [Suspect]
     Active Substance: MORPHINE SULFATE
     Dosage: UNK
     Route: 065
  46. ATEZOLIZUMAB [Suspect]
     Active Substance: ATEZOLIZUMAB
     Indication: Non-small cell lung cancer
     Dosage: 1200 MILLIGRAM EVERY MOST RECENT DOSE OF ATEZOLIZUMAB PRIOR TO ADVERSE EVENT (NAUSEA) ONSET ON 19/AU
     Route: 041
     Dates: start: 20200729
  47. ATEZOLIZUMAB [Suspect]
     Active Substance: ATEZOLIZUMAB
     Indication: Transitional cell carcinoma
     Dosage: 1200 MILLIGRAM, EVERY 3 WEEKS (CUMULATIVE DOSE TO FIRST REACTION: 57.142857 MG)
     Route: 065
     Dates: start: 20200729
  48. ATEZOLIZUMAB [Suspect]
     Active Substance: ATEZOLIZUMAB
     Indication: Small cell lung cancer extensive stage
     Dosage: 1200 MILLIGRAM
     Route: 042
     Dates: start: 20200819
  49. ATEZOLIZUMAB [Suspect]
     Active Substance: ATEZOLIZUMAB
     Dosage: UNK
     Route: 065
  50. ATEZOLIZUMAB [Suspect]
     Active Substance: ATEZOLIZUMAB
     Dosage: UNK
     Route: 065
  51. ATEZOLIZUMAB [Suspect]
     Active Substance: ATEZOLIZUMAB
     Dosage: UNK
     Route: 065
  52. CLOPIDOGREL [Suspect]
     Active Substance: CLOPIDOGREL BISULFATE
     Indication: Hypertension
     Dosage: 1, ONCE A DAY
     Route: 065
  53. CLOPIDOGREL [Suspect]
     Active Substance: CLOPIDOGREL BISULFATE
     Dosage: UNK, ONCE PER DAY
     Route: 065
  54. CLOPIDOGREL [Suspect]
     Active Substance: CLOPIDOGREL BISULFATE
     Dosage: UNK, 1 PER DAY
     Route: 065
  55. CLOPIDOGREL [Suspect]
     Active Substance: CLOPIDOGREL BISULFATE
     Dosage: UNK, 1 PER DAY
     Route: 065
  56. CLOPIDOGREL [Suspect]
     Active Substance: CLOPIDOGREL BISULFATE
     Dosage: UNK, 1 PER DAY
     Route: 065
  57. CLOPIDOGREL [Suspect]
     Active Substance: CLOPIDOGREL BISULFATE
     Dosage: UNK, CLOPIDOGREL BISULFATE
     Route: 065
  58. CYCLIZINE [Suspect]
     Active Substance: CYCLIZINE
     Indication: Vomiting
     Dosage: 4 (UNIT UNKNOWN) PER DAY
     Route: 065
  59. CYCLIZINE [Suspect]
     Active Substance: CYCLIZINE
     Indication: Neutropenic sepsis
     Dosage: 1, 0.3 DAY (1 IN 0.25 DAY)
     Route: 065
  60. CYCLIZINE [Suspect]
     Active Substance: CYCLIZINE
     Dosage: 1 UNK, EVERY 6 HRS
     Route: 065
  61. CYCLIZINE [Suspect]
     Active Substance: CYCLIZINE
     Dosage: UNK
     Route: 065
  62. CYCLIZINE [Suspect]
     Active Substance: CYCLIZINE
     Dosage: UNK
     Route: 065
  63. CYCLIZINE [Suspect]
     Active Substance: CYCLIZINE
     Dosage: 4 MILLIGRAM, ONCE A DAY
     Route: 065
  64. CYCLIZINE [Suspect]
     Active Substance: CYCLIZINE
     Dosage: UNK, 2 TIMES PER DAY
     Route: 065
  65. CYCLIZINE [Suspect]
     Active Substance: CYCLIZINE
     Dosage: UNK, 1, 1.3 DAY
     Route: 065
  66. CYCLIZINE [Suspect]
     Active Substance: CYCLIZINE
     Dosage: UNK, 1, 1.3 DAY
     Route: 065
  67. CYCLIZINE [Suspect]
     Active Substance: CYCLIZINE
     Dosage: UNK, 1, 1.3 DAY
     Route: 065
  68. BENZYDAMINE [Suspect]
     Active Substance: BENZYDAMINE
     Indication: Prophylaxis
     Dosage: UNK (STARTED ON 19 AUG 2020)
     Route: 065
     Dates: start: 20200819
  69. FLUCONAZOLE [Suspect]
     Active Substance: FLUCONAZOLE
     Indication: Candida infection
     Dosage: UNK, ONCE A DAY
     Route: 065
  70. FLUCONAZOLE [Suspect]
     Active Substance: FLUCONAZOLE
     Dosage: UNK
     Route: 065
  71. FLUCONAZOLE [Suspect]
     Active Substance: FLUCONAZOLE
     Dosage: UNK,1PER DAY
     Route: 065
  72. FLUCONAZOLE [Suspect]
     Active Substance: FLUCONAZOLE
     Dosage: UNK,1PER DAY
     Route: 065
  73. FLUCONAZOLE [Suspect]
     Active Substance: FLUCONAZOLE
     Dosage: UNK,1PER DAY
     Route: 065
  74. FORMOTEROL [Suspect]
     Active Substance: FORMOTEROL
     Indication: Hypertension
     Dosage: 1 MILLIGRAM, BID
     Route: 065
     Dates: start: 20200301
  75. FORMOTEROL [Suspect]
     Active Substance: FORMOTEROL
     Dosage: UNK
     Route: 065
     Dates: start: 20200301
  76. FORMOTEROL [Suspect]
     Active Substance: FORMOTEROL
     Dosage: 0.5 MILLIGRAM, BID  (CUMMULATIVE DOSE:150.95833 MG)
     Route: 065
     Dates: start: 20200301
  77. FORMOTEROL [Suspect]
     Active Substance: FORMOTEROL
     Dosage: UNK, QD, 2 PER DAY
     Route: 065
     Dates: start: 20200301
  78. FORMOTEROL [Suspect]
     Active Substance: FORMOTEROL
     Dosage: 2 MILLIGRAM/DAY
     Route: 065
     Dates: start: 20200301
  79. LACTULOSE [Suspect]
     Active Substance: LACTULOSE
     Indication: Prophylaxis
     Dosage: 1 UNK, BID
     Route: 065
  80. LACTULOSE [Suspect]
     Active Substance: LACTULOSE
     Dosage: UNK
     Route: 065
  81. LACTULOSE [Suspect]
     Active Substance: LACTULOSE
     Dosage: 1 UNK, BID
     Route: 065
  82. LACTULOSE [Suspect]
     Active Substance: LACTULOSE
     Dosage: 1 UNK, EVERY 12 HRS
     Route: 065
  83. LACTULOSE [Suspect]
     Active Substance: LACTULOSE
     Dosage: 1 UNK, QD (1 PER DAY)
     Route: 065
  84. LACTULOSE [Suspect]
     Active Substance: LACTULOSE
     Dosage: 1 UNK, BID
     Route: 065
  85. LACTULOSE [Suspect]
     Active Substance: LACTULOSE
     Dosage: 1 UNK, BID
     Route: 065
  86. LACTULOSE [Suspect]
     Active Substance: LACTULOSE
     Dosage: UNK, 2 TIMES PER DAY
     Route: 065
  87. LACTULOSE [Suspect]
     Active Substance: LACTULOSE
     Dosage: UNK, 2 TIMES PER DAY
     Route: 065
  88. LACTULOSE [Suspect]
     Active Substance: LACTULOSE
     Dosage: UNK, BID
     Route: 065
  89. LANSOPRAZOLE [Suspect]
     Active Substance: LANSOPRAZOLE
     Indication: Prophylaxis
     Dosage: 1 MILLIGRAM PER DAY
     Route: 065
     Dates: start: 20170101
  90. LANSOPRAZOLE [Suspect]
     Active Substance: LANSOPRAZOLE
     Dosage: UNK ,1,PER DAY
     Route: 065
     Dates: start: 20170101
  91. LINEZOLID [Suspect]
     Active Substance: LINEZOLID
     Indication: Neutropenic sepsis
     Dosage: UNK
     Route: 065
     Dates: start: 20200830
  92. ALBUTEROL [Suspect]
     Active Substance: ALBUTEROL
     Indication: Prophylaxis
     Dosage: UNK
     Route: 065
  93. ALBUTEROL [Suspect]
     Active Substance: ALBUTEROL
     Dosage: UNK
     Route: 065
  94. ALBUTEROL [Suspect]
     Active Substance: ALBUTEROL
     Dosage: UNK
     Route: 065
  95. ALBUTEROL [Suspect]
     Active Substance: ALBUTEROL
     Dosage: UNK
     Route: 065
  96. ACETAMINOPHEN\CODEINE PHOSPHATE [Suspect]
     Active Substance: ACETAMINOPHEN\CODEINE PHOSPHATE
     Indication: Headache
     Dosage: UNK, BID
     Route: 065
  97. ACETAMINOPHEN\CODEINE PHOSPHATE [Suspect]
     Active Substance: ACETAMINOPHEN\CODEINE PHOSPHATE
     Indication: Pain
     Dosage: UNK, QD
     Route: 065
  98. ACETAMINOPHEN\CODEINE PHOSPHATE [Suspect]
     Active Substance: ACETAMINOPHEN\CODEINE PHOSPHATE
     Dosage: 0.5 MILLIGRAM, QD
     Route: 065
  99. ACETAMINOPHEN\CODEINE PHOSPHATE [Suspect]
     Active Substance: ACETAMINOPHEN\CODEINE PHOSPHATE
     Dosage: UNK, BID
     Route: 065
  100. ACETAMINOPHEN\CODEINE PHOSPHATE [Suspect]
     Active Substance: ACETAMINOPHEN\CODEINE PHOSPHATE
     Dosage: UNK
     Route: 065
  101. ACETAMINOPHEN\CODEINE PHOSPHATE [Suspect]
     Active Substance: ACETAMINOPHEN\CODEINE PHOSPHATE
     Dosage: UNK, 1 BID
     Route: 065
  102. ACETAMINOPHEN\CODEINE PHOSPHATE [Suspect]
     Active Substance: ACETAMINOPHEN\CODEINE PHOSPHATE
     Dosage: UNK, 1 BID
     Route: 065
  103. VENLAFAXINE [Suspect]
     Active Substance: VENLAFAXINE HYDROCHLORIDE
     Indication: Depression
     Dosage: 1 UNK, PER DAY
     Route: 065
     Dates: start: 20200820
  104. VENLAFAXINE [Suspect]
     Active Substance: VENLAFAXINE HYDROCHLORIDE
     Dosage: 1, BID
     Route: 065
     Dates: start: 20200820
  105. VENLAFAXINE [Suspect]
     Active Substance: VENLAFAXINE HYDROCHLORIDE
     Dosage: 1,UNK, PER DAY
     Route: 065
  106. VENLAFAXINE [Suspect]
     Active Substance: VENLAFAXINE HYDROCHLORIDE
     Dosage: 1 UNK, PER DAY
     Route: 065
     Dates: start: 20200820
  107. VENLAFAXINE [Suspect]
     Active Substance: VENLAFAXINE HYDROCHLORIDE
     Dosage: 1 MILLIGRAM, BID
     Route: 065
  108. VENLAFAXINE [Suspect]
     Active Substance: VENLAFAXINE HYDROCHLORIDE
     Dosage: UNK
     Route: 065
  109. VORICONAZOLE [Suspect]
     Active Substance: VORICONAZOLE
     Indication: Neutropenic sepsis
     Dosage: 1 UNK, PER DAY
     Route: 065
     Dates: start: 20200830
  110. VORICONAZOLE [Suspect]
     Active Substance: VORICONAZOLE
     Dosage: UNK, ONE PER DAY
     Route: 065
     Dates: start: 20200830
  111. ZOPICLONE [Suspect]
     Active Substance: ZOPICLONE
     Indication: Prophylaxis
     Dosage: 1 MILLIGRAM, QD
     Route: 065
     Dates: start: 20200731
  112. ZOPICLONE [Suspect]
     Active Substance: ZOPICLONE
     Dosage: UNK, 1 PER DAY
     Route: 065
  113. ZOPICLONE [Suspect]
     Active Substance: ZOPICLONE
     Dosage: UNK
     Route: 065
     Dates: start: 20200731
  114. SPIRIVA [Suspect]
     Active Substance: TIOTROPIUM BROMIDE MONOHYDRATE
     Indication: Chronic obstructive pulmonary disease
     Dosage: UNK, 1 PER DAY
     Route: 065
  115. SPIRIVA [Suspect]
     Active Substance: TIOTROPIUM BROMIDE MONOHYDRATE
     Dosage: UNK, QD
     Route: 065
  116. SPIRIVA [Suspect]
     Active Substance: TIOTROPIUM BROMIDE MONOHYDRATE
     Dosage: UNK, QD
     Route: 065
  117. SPIRIVA [Suspect]
     Active Substance: TIOTROPIUM BROMIDE MONOHYDRATE
     Dosage: UNK
     Route: 065
  118. ZOLMITRIPTAN [Suspect]
     Active Substance: ZOLMITRIPTAN
     Indication: Pain
     Dosage: UNK (1 PER DAY)
     Route: 065
  119. MAGNESIUM [Concomitant]
     Active Substance: MAGNESIUM
     Indication: Product used for unknown indication
     Dosage: UNK
     Route: 065
     Dates: start: 20200819, end: 20200819
  120. METOCLOPRAMIDE [Concomitant]
     Active Substance: METOCLOPRAMIDE
     Indication: Vomiting
     Dosage: UNK, PER DAY (QD)
     Route: 065
  121. METOCLOPRAMIDE [Concomitant]
     Active Substance: METOCLOPRAMIDE
     Dosage: UNK, PER DAY (QD)
     Route: 065
  122. METOCLOPRAMIDE [Concomitant]
     Active Substance: METOCLOPRAMIDE
     Dosage: 4 DOSAGE FORM/DAY (STARTED AND STOPPED ON 19 AUG 2020)
     Route: 065
     Dates: start: 20200819, end: 20200819
  123. POTASSIUM BICARBONATE\POTASSIUM CHLORIDE [Concomitant]
     Active Substance: POTASSIUM BICARBONATE\POTASSIUM CHLORIDE
     Indication: Prophylaxis
     Dosage: UNK
     Route: 065
     Dates: start: 20200819, end: 20200901
  124. POTASSIUM BICARBONATE\POTASSIUM CHLORIDE [Concomitant]
     Active Substance: POTASSIUM BICARBONATE\POTASSIUM CHLORIDE
     Dosage: 1 UNK, BID (STARTED ON 19 AUG 2020)
     Route: 065
     Dates: start: 20200819
  125. POTASSIUM BICARBONATE\POTASSIUM CHLORIDE [Concomitant]
     Active Substance: POTASSIUM BICARBONATE\POTASSIUM CHLORIDE
     Dosage: 2 DOSAGE FORM, BID
     Route: 065
     Dates: start: 20200819
  126. POTASSIUM BICARBONATE\POTASSIUM CHLORIDE [Concomitant]
     Active Substance: POTASSIUM BICARBONATE\POTASSIUM CHLORIDE
     Dosage: UNK, PER DAY
     Route: 065
     Dates: start: 20200828, end: 20200901
  127. POTASSIUM BICARBONATE\POTASSIUM CHLORIDE [Concomitant]
     Active Substance: POTASSIUM BICARBONATE\POTASSIUM CHLORIDE
     Dosage: UNK, (5QD)
     Route: 065
  128. UNSPECIFIED INGREDIENT [Concomitant]
     Active Substance: UNSPECIFIED INGREDIENT
     Indication: Product used for unknown indication
     Dosage: UNK, PER DAY
     Route: 065
     Dates: start: 20200825, end: 20200825
  129. UNSPECIFIED INGREDIENT [Concomitant]
     Active Substance: UNSPECIFIED INGREDIENT
     Dosage: UNK
     Route: 065
  130. ONDANSETRON [Concomitant]
     Active Substance: ONDANSETRON
     Indication: Product used for unknown indication
     Dosage: 8 MILLIGRAM (START AND STOP DATE: 29/7/2020)
     Route: 065
     Dates: start: 20200729, end: 20200729

REACTIONS (31)
  - Death [Fatal]
  - Nervous system disorder [Fatal]
  - Gait disturbance [Fatal]
  - Asthenia [Fatal]
  - Dehydration [Fatal]
  - Mucosal inflammation [Fatal]
  - Productive cough [Fatal]
  - Dysphagia [Fatal]
  - Mouth ulceration [Fatal]
  - Constipation [Fatal]
  - Hypomagnesaemia [Fatal]
  - Hypomagnesaemia [Fatal]
  - Headache [Fatal]
  - Hypokalaemia [Fatal]
  - Anaemia [Fatal]
  - Anaemia [Fatal]
  - Vomiting [Fatal]
  - Diarrhoea [Fatal]
  - Dyspnoea [Fatal]
  - Nausea [Fatal]
  - Depression [Fatal]
  - Skin candida [Fatal]
  - Neutropenic sepsis [Fatal]
  - Candida infection [Fatal]
  - Vomiting [Fatal]
  - Neutrophil count decreased [Fatal]
  - Decreased appetite [Fatal]
  - Balance disorder [Fatal]
  - Drug ineffective [Fatal]
  - Product use in unapproved indication [Fatal]
  - Off label use [Unknown]

NARRATIVE: CASE EVENT DATE: 20200730
